FAERS Safety Report 16714781 (Version 2)
Quarter: 2019Q3

REPORT INFORMATION
  Report Type: Spontaneous
  Country: FR (occurrence: FR)
  Receive Date: 20190819
  Receipt Date: 20190911
  Transmission Date: 20191004
  Serious: Yes (Other)
  Sender: FDA-Public Use
  Company Number: PHHY2019FR187989

PATIENT
  Age: 78 Year
  Sex: Male
  Weight: 95 kg

DRUGS (4)
  1. ZOPHREN [Suspect]
     Active Substance: ONDANSETRON
     Indication: PREMEDICATION
     Dosage: 1 DF, 1 TOTAL
     Route: 042
     Dates: start: 20190710, end: 20190710
  2. LEVOFOLINATE CALCIUM [Suspect]
     Active Substance: LEVOLEUCOVORIN CALCIUM
     Indication: COLON CANCER
     Dosage: 350 MG, 1 TOTAL
     Route: 042
     Dates: start: 20190710, end: 20190710
  3. SOLU-MEDROL [Concomitant]
     Active Substance: METHYLPREDNISOLONE SODIUM SUCCINATE
     Indication: PREMEDICATION
     Dosage: 40 MG, 1 TOTAL
     Route: 042
     Dates: start: 20190710, end: 20190710
  4. OXALIPLATINE KABI [Suspect]
     Active Substance: OXALIPLATIN
     Indication: COLON CANCER
     Dosage: 179 MG, 1 TOTAL
     Route: 042
     Dates: start: 20190710, end: 20190710

REACTIONS (4)
  - Paraesthesia [Recovering/Resolving]
  - Dizziness [Recovered/Resolved]
  - Erythema [Recovering/Resolving]
  - Hypersensitivity [Recovered/Resolved]

NARRATIVE: CASE EVENT DATE: 20190710
